FAERS Safety Report 12589719 (Version 1)
Quarter: 2016Q3

REPORT INFORMATION
  Report Type: Spontaneous
  Country: US (occurrence: US)
  Receive Date: 20160725
  Receipt Date: 20160725
  Transmission Date: 20161109
  Serious: No
  Sender: FDA-Public Use
  Company Number: US-GALDERMA-US15005424

PATIENT
  Age: 18 Year
  Sex: Female

DRUGS (4)
  1. NEUTROGENA FACIAL CLEANSER [Concomitant]
     Route: 061
  2. ELIDEL [Concomitant]
     Active Substance: PIMECROLIMUS
     Indication: ECZEMA
     Route: 061
  3. ADAPALENE (ADAPALENE) [Suspect]
     Active Substance: ADAPALENE
     Indication: ACNE
     Route: 061
  4. DOVE LIQUID CLEANSER [Concomitant]
     Route: 061

REACTIONS (1)
  - Acne [Not Recovered/Not Resolved]
